FAERS Safety Report 6887325-5 (Version None)
Quarter: 2010Q3

REPORT INFORMATION
  Report Type: 
  Country: None (occurrence: None)
  Receive Date: 20100730
  Receipt Date: 20090727
  Transmission Date: 20110219
  Serious: No
  Sender: FDA-Public Use
  Company Number: A0799909A

PATIENT
  Sex: Female

DRUGS (1)
  1. IMITREX [Suspect]
     Indication: MIGRAINE
     Dosage: 100MG SINGLE DOSE
     Route: 048
     Dates: start: 20090701, end: 20090701

REACTIONS (4)
  - COLD SWEAT [None]
  - HYPERSENSITIVITY [None]
  - URTICARIA [None]
  - VOMITING [None]
